FAERS Safety Report 10257949 (Version 1)
Quarter: 2014Q2

REPORT INFORMATION
  Report Type: Spontaneous
  Country: US (occurrence: None)
  Receive Date: 20140620
  Receipt Date: 20140620
  Transmission Date: 20141212
  Serious: Yes (Other)
  Sender: FDA-Public Use
  Company Number: A1077494A

PATIENT
  Sex: Female

DRUGS (1)
  1. CALCIUM CARBONATE (FORMULATION UNKNOWN) CALCIUM CARBONATE [Suspect]
     Indication: PRODUCT USED FOR UNKNOWN INDICATION
     Route: 048

REACTIONS (2)
  - Intentional overdose [None]
  - Suicide attempt [None]
